FAERS Safety Report 16428071 (Version 1)
Quarter: 2019Q2

REPORT INFORMATION
  Report Type: Spontaneous
  Country: US (occurrence: US)
  Receive Date: 20190613
  Receipt Date: 20190613
  Transmission Date: 20190711
  Serious: No
  Sender: FDA-Public Use
  Company Number: US-PFIZER INC-2019249272

PATIENT
  Sex: Female

DRUGS (2)
  1. ADVIL [Suspect]
     Active Substance: IBUPROFEN
     Indication: INFLAMMATION
  2. ADVIL [Suspect]
     Active Substance: IBUPROFEN
     Indication: SWELLING
     Dosage: 200 MG, UNK

REACTIONS (3)
  - Off label use [Unknown]
  - Product use in unapproved indication [Unknown]
  - Pain [Unknown]
